FAERS Safety Report 10206947 (Version 1)
Quarter: 2014Q2

REPORT INFORMATION
  Report Type: Spontaneous
  Country: US (occurrence: US)
  Receive Date: 20140530
  Receipt Date: 20140530
  Transmission Date: 20141212
  Serious: Yes (Hospitalization)
  Sender: FDA-Public Use
  Company Number: US-B.I. PHARMACEUTICALS,INC./RIDGEFIELD-2014-BI-23267BP

PATIENT
  Age: 60 Year
  Sex: Male
  Weight: 106 kg

DRUGS (6)
  1. SPIRIVA [Suspect]
     Indication: CHRONIC OBSTRUCTIVE PULMONARY DISEASE
     Dosage: 18 MCG
     Route: 055
  2. SPIRONALACTONE [Concomitant]
     Indication: FLUID RETENTION
     Route: 048
  3. LASIX [Concomitant]
     Indication: FLUID RETENTION
     Route: 048
  4. POTASSIUM [Concomitant]
     Route: 048
  5. MULTIVITAMIN [Concomitant]
     Route: 048
  6. ADVAIR [Concomitant]
     Indication: CHRONIC OBSTRUCTIVE PULMONARY DISEASE
     Dosage: FORMULATION: INHALATION AEROSOL
     Route: 055

REACTIONS (1)
  - Ammonia increased [Recovered/Resolved]
